FAERS Safety Report 10562273 (Version 3)
Quarter: 2014Q4

REPORT INFORMATION
  Report Type: Report from Study
  Country: ES (occurrence: ES)
  Receive Date: 20141104
  Receipt Date: 20141113
  Transmission Date: 20150529
  Serious: Yes (Other)
  Sender: FDA-Public Use
  Company Number: ES-009507513-1411ESP000084

PATIENT
  Age: 50 Year
  Sex: Male

DRUGS (3)
  1. BOCEPREVIR [Interacting]
     Active Substance: BOCEPREVIR
     Route: 048
  2. ATRIPLA [Suspect]
     Active Substance: EFAVIRENZ\EMTRICITABINE\TENOFOVIR DISOPROXIL FUMARATE
     Indication: HIV INFECTION
     Dosage: DAILY DOSE UNKNOWN
     Route: 048
     Dates: start: 201203
  3. TELAPREVIR [Interacting]
     Active Substance: TELAPREVIR
     Route: 065

REACTIONS (1)
  - Drug interaction [Unknown]
